FAERS Safety Report 15201350 (Version 1)
Quarter: 2018Q3

REPORT INFORMATION
  Report Type: Spontaneous
  Country: DE (occurrence: DE)
  Receive Date: 20180726
  Receipt Date: 20180726
  Transmission Date: 20181010
  Serious: Yes (Other)
  Sender: FDA-Public Use
  Company Number: DE-TORRENT-00009064

PATIENT
  Age: 19 Year
  Sex: Female
  Weight: 70 kg

DRUGS (1)
  1. ESCITALOPRAM [Suspect]
     Active Substance: ESCITALOPRAM OXALATE
     Indication: BORDERLINE PERSONALITY DISORDER
     Dosage: UNKNOWN
     Route: 065
     Dates: start: 201309

REACTIONS (4)
  - Exposure during pregnancy [Unknown]
  - Product use in unapproved indication [Unknown]
  - Abortion spontaneous [Unknown]
  - Toxicity to various agents [Unknown]
